FAERS Safety Report 8092723-0 (Version None)
Quarter: 2012Q1

REPORT INFORMATION
  Report Type: 
  Country: None (occurrence: None)
  Receive Date: 20120128
  Receipt Date: 20110804
  Transmission Date: 20120608
  Serious: No
  Sender: FDA-Public Use
  Company Number: US-ABBOTT-11P-163-0844075-00

PATIENT
  Sex: Female
  Weight: 29.51 kg

DRUGS (1)
  1. HUMIRA [Suspect]
     Indication: JUVENILE ARTHRITIS
     Route: 058
     Dates: start: 20101101, end: 20110709

REACTIONS (6)
  - ARTHROPOD STING [None]
  - OEDEMA PERIPHERAL [None]
  - URTICARIA [None]
  - PRURITUS [None]
  - ALLERGY TO ARTHROPOD STING [None]
  - PHARYNGITIS STREPTOCOCCAL [None]
